FAERS Safety Report 9563538 (Version 1)
Quarter: 2013Q1

REPORT INFORMATION
  Report Type: Spontaneous
  Country: US (occurrence: None)
  Receive Date: 20121218
  Receipt Date: 20121218
  Transmission Date: 20140127
  Serious: Yes (Other)
  Sender: FDA-Public Use
  Company Number: PHEH2012US001645

PATIENT
  Age: 43 Year
  Sex: Male

DRUGS (1)
  1. ZOMETA (ZOLEDRONATE) UNKNOWN [Suspect]
     Indication: METASTASES TO BONE

REACTIONS (4)
  - Neoplasm progression [None]
  - Fatigue [None]
  - Pain [None]
  - Neoplasm malignant [None]
